FAERS Safety Report 10181000 (Version 2)
Quarter: 2014Q2

REPORT INFORMATION
  Report Type: Spontaneous
  Country: US (occurrence: US)
  Receive Date: 20140519
  Receipt Date: 20140519
  Transmission Date: 20141212
  Serious: No
  Sender: FDA-Public Use
  Company Number: US-AMGEN INC.-USASP2014013322

PATIENT
  Age: 63 Year
  Sex: Female

DRUGS (2)
  1. PROLIA [Suspect]
     Indication: OSTEOPOROSIS POSTMENOPAUSAL
     Dosage: UNK
     Route: 065
     Dates: start: 20140220
  2. IMMUNOGLOBULIN I.V [Concomitant]
     Indication: AUTONOMIC NEUROPATHY
     Dosage: UNK UNK, Q3WK
     Route: 042

REACTIONS (3)
  - Abdominal pain upper [Unknown]
  - Insomnia [Unknown]
  - Bone pain [Unknown]
